FAERS Safety Report 9981976 (Version 1)
Quarter: 2014Q1

REPORT INFORMATION
  Report Type: Report from Study
  Country: US (occurrence: US)
  Receive Date: 20140307
  Receipt Date: 20140307
  Transmission Date: 20141002
  Serious: No
  Sender: FDA-Public Use
  Company Number: US-ABBVIE-13P-163-1177404-00

PATIENT
  Age: 80 Year
  Sex: Female
  Weight: 75.82 kg

DRUGS (2)
  1. HUMIRA [Suspect]
     Indication: RHEUMATOID ARTHRITIS
     Route: 058
     Dates: start: 20130911, end: 201310
  2. LISINOPRIL [Concomitant]
     Indication: HYPERTENSION

REACTIONS (5)
  - Dizziness [Recovered/Resolved]
  - Abdominal discomfort [Recovered/Resolved]
  - Balance disorder [Recovered/Resolved]
  - Pyrexia [Recovered/Resolved]
  - Fluid retention [Not Recovered/Not Resolved]
